FAERS Safety Report 21335025 (Version 1)
Quarter: 2022Q3

REPORT INFORMATION
  Report Type: Spontaneous
  Country: US (occurrence: None)
  Receive Date: 20220914
  Receipt Date: 20220914
  Transmission Date: 20221027
  Serious: No
  Sender: FDA-Public Use
  Company Number: None

PATIENT

DRUGS (3)
  1. HYDROXYUREA [Suspect]
     Active Substance: HYDROXYUREA
  2. ENLITE SENSOR (MMT-7008) [Concomitant]
  3. GUARDIAN SENSOR 3 (MMT-7020) [Concomitant]

REACTIONS (2)
  - Complication associated with device [None]
  - Contraindicated product administered [None]
